FAERS Safety Report 25166192 (Version 1)
Quarter: 2025Q2

REPORT INFORMATION
  Report Type: Spontaneous
  Country: CN (occurrence: CN)
  Receive Date: 20250407
  Receipt Date: 20250407
  Transmission Date: 20250716
  Serious: Yes (Hospitalization)
  Sender: ROCHE
  Company Number: CN-ROCHE-10000244453

PATIENT
  Age: 58 Year
  Sex: Female
  Weight: 55 kg

DRUGS (2)
  1. ALECTINIB HYDROCHLORIDE [Suspect]
     Active Substance: ALECTINIB HYDROCHLORIDE
     Indication: Lung neoplasm malignant
     Route: 048
     Dates: start: 20241204, end: 20250311
  2. MONTMORILLONITE [Concomitant]
     Active Substance: MONTMORILLONITE

REACTIONS (14)
  - Acute kidney injury [Recovering/Resolving]
  - Platelet count decreased [Recovering/Resolving]
  - Renal failure [Recovering/Resolving]
  - Haemoglobin decreased [Unknown]
  - Urinary tract infection [Unknown]
  - Diarrhoea [Unknown]
  - Flushing [Unknown]
  - Rash [Unknown]
  - Purpura [Unknown]
  - Bacterial infection [Unknown]
  - Hyponatraemia [Unknown]
  - Myocardial necrosis marker increased [Unknown]
  - Hypertension [Unknown]
  - Asthma [Unknown]

NARRATIVE: CASE EVENT DATE: 20250224
